FAERS Safety Report 26101781 (Version 1)
Quarter: 2025Q4

REPORT INFORMATION
  Report Type: Spontaneous
  Country: US (occurrence: US)
  Receive Date: 20251128
  Receipt Date: 20251128
  Transmission Date: 20260117
  Serious: No
  Sender: B. BRAUN MEDICAL INC.
  Company Number: US-B. Braun Medical Inc.-US-BBM-202504495

PATIENT

DRUGS (1)
  1. BUPIVACAINE HYDROCHLORIDE WITH DEXTROSE [Suspect]
     Active Substance: BUPIVACAINE HYDROCHLORIDE

REACTIONS (2)
  - Drug ineffective [Unknown]
  - Anaesthetic complication [Unknown]
